FAERS Safety Report 12162197 (Version 1)
Quarter: 2016Q1

REPORT INFORMATION
  Report Type: Spontaneous
  Country: US (occurrence: US)
  Receive Date: 20160309
  Receipt Date: 20160309
  Transmission Date: 20160526
  Serious: No
  Sender: FDA-Public Use
  Company Number: US-BIOGEN-2016BI00195840

PATIENT
  Sex: Female

DRUGS (1)
  1. TECFIDERA [Suspect]
     Active Substance: DIMETHYL FUMARATE
     Indication: MULTIPLE SCLEROSIS
     Route: 048

REACTIONS (11)
  - Parosmia [Unknown]
  - Euphoric mood [Unknown]
  - Depression [Unknown]
  - Anger [Unknown]
  - Flushing [Unknown]
  - Mood altered [Unknown]
  - Vomiting [Unknown]
  - Eye pain [Unknown]
  - Vision blurred [Recovered/Resolved]
  - Influenza like illness [Unknown]
  - Dysgeusia [Unknown]
